FAERS Safety Report 8066819-3 (Version None)
Quarter: 2012Q1

REPORT INFORMATION
  Report Type: 
  Country: None (occurrence: None)
  Receive Date: 20120124
  Receipt Date: 20120118
  Transmission Date: 20120608
  Serious: Yes (Other)
  Sender: FDA-Public Use
  Company Number: PHHY2012DE003018

PATIENT
  Sex: Male

DRUGS (1)
  1. GILENYA [Suspect]
     Indication: MULTIPLE SCLEROSIS
     Dosage: 0.5 MG, QD
     Route: 048
     Dates: start: 20111220, end: 20120112

REACTIONS (9)
  - FOLLICULITIS [None]
  - NASOPHARYNGITIS [None]
  - ANGINA PECTORIS [None]
  - NASAL INFLAMMATION [None]
  - INFLAMMATION [None]
  - COUGH [None]
  - SKIN DISORDER [None]
  - BLISTER [None]
  - PYREXIA [None]
